FAERS Safety Report 4354695-1 (Version None)
Quarter: 2004Q2

REPORT INFORMATION
  Report Type: 
  Country: None (occurrence: None)
  Receive Date: 20040503
  Receipt Date: 20040427
  Transmission Date: 20050107
  Serious: Yes (Hospitalization)
  Sender: FDA-Public Use
  Company Number: USA-2003-0009878

PATIENT
  Age: 61 Year
  Sex: Male
  Weight: 90.7 kg

DRUGS (11)
  1. OXYCONTIN [Suspect]
     Indication: PAIN
     Dosage: SEE IMAGE
     Dates: start: 20030726, end: 20030920
  2. COUMADIN [Concomitant]
  3. ULTRACEF (CEFADROXIL) [Concomitant]
  4. HYDROCHLOROTHIAZIDE [Concomitant]
  5. ELAVIL [Concomitant]
  6. STOOL SOFTENER [Concomitant]
  7. ANTIHYPERTENSIVES [Concomitant]
  8. AVAPRO [Concomitant]
  9. PREVACID [Concomitant]
  10. AMBIEN [Concomitant]
  11. ZOFRAN [Concomitant]

REACTIONS (12)
  - ABDOMINAL PAIN [None]
  - BLOOD PRESSURE INCREASED [None]
  - DRUG WITHDRAWAL SYNDROME [None]
  - INSOMNIA [None]
  - LABILE BLOOD PRESSURE [None]
  - MALAISE [None]
  - NAUSEA [None]
  - PALPITATIONS [None]
  - PULMONARY EMBOLISM [None]
  - STOMACH DISCOMFORT [None]
  - TACHYCARDIA [None]
  - WEIGHT DECREASED [None]
